FAERS Safety Report 7580646-2 (Version None)
Quarter: 2011Q2

REPORT INFORMATION
  Report Type: 
  Country: None (occurrence: None)
  Receive Date: 20110629
  Receipt Date: 20110621
  Transmission Date: 20111010
  Serious: Yes (Other)
  Sender: FDA-Public Use
  Company Number: US-ABBOTT-11P-163-0734319-00

PATIENT
  Sex: Female

DRUGS (10)
  1. HUMIRA [Suspect]
     Route: 058
  2. METROPROLOL XL [Concomitant]
     Indication: HEART RATE IRREGULAR
     Dosage: DAILY
  3. NAPROXEN [Concomitant]
     Indication: PRODUCT USED FOR UNKNOWN INDICATION
  4. PROZAC [Concomitant]
     Indication: PRODUCT USED FOR UNKNOWN INDICATION
  5. LEVOXYL [Concomitant]
     Indication: HYPOTHYROIDISM
  6. PEPCID AC [Concomitant]
     Indication: PRODUCT USED FOR UNKNOWN INDICATION
  7. NAPROXEN (ALEVE) [Concomitant]
     Indication: PRODUCT USED FOR UNKNOWN INDICATION
  8. CHLORPHENIRAMINE MALEATE [Concomitant]
     Indication: PRODUCT USED FOR UNKNOWN INDICATION
  9. HUMIRA [Suspect]
     Indication: RHEUMATOID ARTHRITIS
     Dates: start: 20030101
  10. CLONAZEPAM [Concomitant]
     Indication: RESTLESS LEGS SYNDROME

REACTIONS (7)
  - PILONIDAL CYST [None]
  - IMPAIRED GASTRIC EMPTYING [None]
  - TUMOUR MARKER INCREASED [None]
  - GALLBLADDER DISORDER [None]
  - ROSACEA [None]
  - DRUG EFFECT DECREASED [None]
  - IRRITABLE BOWEL SYNDROME [None]
